FAERS Safety Report 23283862 (Version 1)
Quarter: 2023Q4

REPORT INFORMATION
  Report Type: Spontaneous
  Country: US (occurrence: US)
  Receive Date: 20231211
  Receipt Date: 20231211
  Transmission Date: 20240110
  Serious: No
  Sender: FDA-Public Use
  Company Number: US-BIOGEN-2021BI01080699

PATIENT
  Sex: Female

DRUGS (4)
  1. TECFIDERA [Suspect]
     Active Substance: DIMETHYL FUMARATE
     Indication: Multiple sclerosis
     Route: 050
     Dates: start: 20191207
  2. AMBIEN [Concomitant]
     Active Substance: ZOLPIDEM TARTRATE
     Route: 050
  3. ELETRIPTAN [Concomitant]
     Active Substance: ELETRIPTAN
     Route: 050
  4. BOTOX [Concomitant]
     Active Substance: ONABOTULINUMTOXINA
     Route: 050

REACTIONS (5)
  - Treatment failure [Unknown]
  - Blood cholesterol increased [Unknown]
  - Liver disorder [Unknown]
  - Alanine aminotransferase increased [Unknown]
  - Aspartate aminotransferase increased [Unknown]
